FAERS Safety Report 16570869 (Version 1)
Quarter: 2019Q3

REPORT INFORMATION
  Report Type: Spontaneous
  Country: US (occurrence: US)
  Receive Date: 20190531
  Receipt Date: 20190531
  Transmission Date: 20191004
  Serious: No
  Sender: FDA-Public Use
  Company Number: None

PATIENT
  Age: 71 Year
  Sex: Male
  Weight: 108.41 kg

DRUGS (12)
  1. LORATADINE. [Concomitant]
     Active Substance: LORATADINE
  2. LODIPINE [Concomitant]
  3. AORVASTATIN [Concomitant]
  4. MONTELUKAST [Concomitant]
     Active Substance: MONTELUKAST SODIUM
  5. FISH OIL [Concomitant]
     Active Substance: FISH OIL
  6. METFORMIN [Concomitant]
     Active Substance: METFORMIN HYDROCHLORIDE
  7. ASPIRIN LOW DOSE [Concomitant]
     Active Substance: ASPIRIN
  8. ONE TOUCH DELICA LANCING DEV [Concomitant]
  9. C-PAP MACHINE [Concomitant]
     Active Substance: DEVICE
  10. GAVILYTE G [Suspect]
     Active Substance: POLYETHYLENE GLYCOL 3350\POTASSIUM CHLORIDE\SODIUM BICARBONATE\SODIUM CHLORIDE\SODIUM SULFATE ANHYDROUS
     Indication: COLONOSCOPY
     Dosage: 8OZ CUP EVERY 10 MIN FOR 2 HRS, BY MOUTH
     Route: 048
     Dates: start: 20190421, end: 20190422
  11. FLUTICASONE. [Concomitant]
     Active Substance: FLUTICASONE
  12. LOSARTAN-HYDROCHLOROTHIAZIDE [Concomitant]
     Active Substance: HYDROCHLOROTHIAZIDE\LOSARTAN

REACTIONS (3)
  - Bladder obstruction [None]
  - Urinary retention [None]
  - Haemorrhage [None]

NARRATIVE: CASE EVENT DATE: 20190421
